FAERS Safety Report 6335820-X (Version None)
Quarter: 2009Q3

REPORT INFORMATION
  Report Type: 
  Country: None (occurrence: None)
  Receive Date: 20090828
  Receipt Date: 20090813
  Transmission Date: 20100115
  Serious: Yes (Death)
  Sender: FDA-Public Use
  Company Number: AE 2009-095

PATIENT
  Age: 68 Year
  Sex: Male

DRUGS (1)
  1. FAZACLO ODT [Suspect]
     Dosage: 650 MG PO DAILY
     Dates: start: 20070911

REACTIONS (1)
  - LUNG NEOPLASM MALIGNANT [None]
